FAERS Safety Report 4268830-7 (Version None)
Quarter: 2004Q1

REPORT INFORMATION
  Report Type: 
  Country: None (occurrence: None)
  Receive Date: 20040109
  Receipt Date: 20030105
  Transmission Date: 20041129
  Serious: Yes (Disabling)
  Sender: FDA-Public Use
  Company Number: 2004CG00001

PATIENT
  Age: 83 Year
  Sex: Male
  Weight: 85 kg

DRUGS (2)
  1. XYLOCAINE [Suspect]
     Indication: LOCAL ANAESTHESIA
     Dosage: 60 MG RNB
     Dates: start: 20020513, end: 20020513
  2. BUPIVACAINE [Suspect]
     Indication: LOCAL ANAESTHESIA
     Dosage: 15 MG RNB
     Dates: start: 20020513, end: 20020513

REACTIONS (2)
  - DIPLOPIA [None]
  - OPHTHALMOPLEGIA [None]
